FAERS Safety Report 9773674 (Version 1)
Quarter: 2013Q4

REPORT INFORMATION
  Report Type: Spontaneous
  Country: US (occurrence: US)
  Receive Date: 20131219
  Receipt Date: 20131219
  Transmission Date: 20140711
  Serious: No
  Sender: FDA-Public Use
  Company Number: US-MYLANLABS-2013S1021622

PATIENT
  Sex: Male

DRUGS (1)
  1. ATORVASTATIN CALCIUM TABLETS [Suspect]

REACTIONS (1)
  - Vomiting [Not Recovered/Not Resolved]
